FAERS Safety Report 8471922-X (Version None)
Quarter: 2012Q2

REPORT INFORMATION
  Report Type: 
  Country: None (occurrence: None)
  Receive Date: 20120627
  Receipt Date: 20120618
  Transmission Date: 20120825
  Serious: Yes (Hospitalization)
  Sender: FDA-Public Use
  Company Number: US-BAYER-2012-061795

PATIENT
  Age: 29 Year
  Sex: Female
  Weight: 75 kg

DRUGS (8)
  1. TETRACYCLINE [Concomitant]
     Dosage: UNK
  2. HYDROCHLORIDE [Concomitant]
  3. YASMIN [Suspect]
     Dosage: UNK
  4. IBUPROFEN [Concomitant]
     Dosage: UNK
  5. HYDROCODONE BITARTRATE AND ACETAMINOPHEN [Concomitant]
     Indication: PAIN
     Dosage: 7.5/750, 1  EVERY 4 TO 6 HOURS AS NEEDED
  6. TAMIFLU [Concomitant]
     Dosage: 75 MG, UNK
  7. PHENTERMINE [Concomitant]
     Dosage: 37.5 MG, UNK
  8. HYDROCHLOROTHIAZIDE [Concomitant]
     Dosage: 25 MG, UNK

REACTIONS (1)
  - DEEP VEIN THROMBOSIS [None]
